FAERS Safety Report 13477452 (Version 1)
Quarter: 2017Q2

REPORT INFORMATION
  Report Type: Spontaneous
  Country: JP (occurrence: JP)
  Receive Date: 20170425
  Receipt Date: 20170425
  Transmission Date: 20170830
  Serious: Yes (Hospitalization)
  Sender: FDA-Public Use
  Company Number: JP-APOTEX-2017AP010698

PATIENT
  Age: 70 Year
  Sex: Female

DRUGS (1)
  1. PAXIL [Suspect]
     Active Substance: PAROXETINE HYDROCHLORIDE
     Indication: PRODUCT USED FOR UNKNOWN INDICATION
     Dosage: UNK MG, UNK
     Route: 048
     Dates: start: 2004

REACTIONS (11)
  - Palpitations [Unknown]
  - Hallucination, auditory [Unknown]
  - Dyskinesia [Unknown]
  - Gait disturbance [Unknown]
  - Dyspnoea [Unknown]
  - Arterial occlusive disease [Unknown]
  - Confusional state [Unknown]
  - Derealisation [Unknown]
  - Eating disorder [Unknown]
  - Weight decreased [Unknown]
  - Hallucination [Unknown]

NARRATIVE: CASE EVENT DATE: 2014
